FAERS Safety Report 8392059-4 (Version None)
Quarter: 2012Q2

REPORT INFORMATION
  Report Type: 
  Country: None (occurrence: None)
  Receive Date: 20120529
  Receipt Date: 20120515
  Transmission Date: 20120825
  Serious: Yes (Other)
  Sender: FDA-Public Use
  Company Number: US-JNJFOC-20120516321

PATIENT

DRUGS (2)
  1. KETOCONAZOLE [Suspect]
     Indication: PRODUCT USED FOR UNKNOWN INDICATION
     Dosage: DAY 3 TO DAY 6 (8.30 AM)
     Route: 048
  2. DIHYDROERGOTAMINE MESYLATE [Suspect]
     Indication: PRODUCT USED FOR UNKNOWN INDICATION
     Dosage: MAP0004; ON DAY 2 AND 6; 2 ACTUATIONS; EMITTED DOSE OF 0.63 MG
     Route: 055

REACTIONS (1)
  - ADVERSE EVENT [None]
